FAERS Safety Report 21420605 (Version 1)
Quarter: 2022Q4

REPORT INFORMATION
  Report Type: Other
  Country: ES (occurrence: ES)
  Receive Date: 20221007
  Receipt Date: 20221007
  Transmission Date: 20230113
  Serious: Yes (Hospitalization, Other)
  Sender: FDA-Public Use
  Company Number: ES-009507513-2209ESP005021

PATIENT
  Age: 47 Year
  Sex: Male
  Weight: 58 kg

DRUGS (4)
  1. TOCILIZUMAB [Suspect]
     Active Substance: TOCILIZUMAB
     Indication: COVID-19 pneumonia
     Dosage: UNK
     Route: 065
  2. TOCILIZUMAB [Suspect]
     Active Substance: TOCILIZUMAB
     Indication: COVID-19
  3. PEMBROLIZUMAB [Suspect]
     Active Substance: PEMBROLIZUMAB
     Indication: COVID-19 pneumonia
     Dosage: Q3W, DAY 1 AND 21, THEN AS PER CLINICAL IMPROVEMENT
     Route: 065
  4. PEMBROLIZUMAB [Suspect]
     Active Substance: PEMBROLIZUMAB
     Indication: COVID-19

REACTIONS (6)
  - COVID-19 [Recovered/Resolved]
  - Delirium [Recovered/Resolved]
  - Essential tremor [Recovered/Resolved]
  - Alanine aminotransferase increased [Recovered/Resolved]
  - Severe acute respiratory syndrome [Recovered/Resolved]
  - Transaminases increased [Recovered/Resolved]

NARRATIVE: CASE EVENT DATE: 20200819
